FAERS Safety Report 4602572-0 (Version None)
Quarter: 2005Q1

REPORT INFORMATION
  Report Type: 
  Country: None (occurrence: None)
  Receive Date: 20050309
  Receipt Date: 20050228
  Transmission Date: 20050727
  Serious: Yes (Other)
  Sender: FDA-Public Use
  Company Number: DE-JNJFOC-20050301145

PATIENT
  Sex: Female

DRUGS (1)
  1. REOPRO [Suspect]
     Indication: ACUTE CORONARY SYNDROME
     Route: 042

REACTIONS (1)
  - RHEUMATOID ARTHRITIS [None]
